FAERS Safety Report 23246655 (Version 1)
Quarter: 2023Q4

REPORT INFORMATION
  Report Type: Spontaneous
  Country: CA (occurrence: CA)
  Receive Date: 20231130
  Receipt Date: 20231130
  Transmission Date: 20240110
  Serious: Yes (Death, Other)
  Sender: FDA-Public Use
  Company Number: CA-BAYER-2023A170750

PATIENT

DRUGS (1)
  1. GADOBUTROL [Suspect]
     Active Substance: GADOBUTROL
     Dosage: 30 ML, ONCE

REACTIONS (2)
  - Death [Fatal]
  - Application site pruritus [None]
